FAERS Safety Report 8966991 (Version 1)
Quarter: 2012Q4

REPORT INFORMATION
  Report Type: 
  Country: US (occurrence: US)
  Receive Date: 20121217
  Receipt Date: 20121217
  Transmission Date: 20130627
  Serious: Yes (Hospitalization, Other)
  Sender: FDA-Public Use
  Company Number: US-ELI_LILLY_AND_COMPANY-US201212002948

PATIENT
  Age: 59 Year
  Sex: Male

DRUGS (2)
  1. CYMBALTA [Suspect]
     Indication: DEPRESSION
     Dosage: 60 mg, qd
  2. CYMBALTA [Suspect]
     Dosage: 30 mg, qd

REACTIONS (4)
  - Road traffic accident [Unknown]
  - Substance abuse [Unknown]
  - Traumatic liver injury [Unknown]
  - Liver disorder [Unknown]
